FAERS Safety Report 22525694 (Version 3)
Quarter: 2024Q2

REPORT INFORMATION
  Report Type: Spontaneous
  Country: US (occurrence: US)
  Receive Date: 20230606
  Receipt Date: 20240426
  Transmission Date: 20240716
  Serious: Yes (Other)
  Sender: FDA-Public Use
  Company Number: US-MLMSERVICE-20230525-4309133-1

PATIENT
  Age: 39 Year
  Sex: Male

DRUGS (2)
  1. SPIRONOLACTONE [Suspect]
     Active Substance: SPIRONOLACTONE
     Indication: Transgender hormonal therapy
     Dosage: FOR 3 YEARS
  2. ESTRADIOL [Suspect]
     Active Substance: ESTRADIOL
     Indication: Transgender hormonal therapy
     Dosage: FOR 3 YEARS
     Route: 048

REACTIONS (4)
  - Metastases to lymph nodes [Unknown]
  - Invasive ductal breast carcinoma [Unknown]
  - Hormone receptor positive breast cancer [Unknown]
  - Off label use [Unknown]
